FAERS Safety Report 9322515 (Version 1)
Quarter: 2013Q2

REPORT INFORMATION
  Report Type: Spontaneous
  Country: BE (occurrence: BE)
  Receive Date: 20130531
  Receipt Date: 20130531
  Transmission Date: 20140414
  Serious: Yes (Other)
  Sender: FDA-Public Use
  Company Number: CHNY2013BE001227

PATIENT
  Sex: Female

DRUGS (1)
  1. NICOTINELL TTS 30 [Suspect]
     Dosage: 21 MG, UNK
     Route: 062

REACTIONS (3)
  - Ventricular tachycardia [Unknown]
  - Palpitations [Unknown]
  - Tachycardia [Unknown]
